FAERS Safety Report 7546923-6 (Version None)
Quarter: 2011Q2

REPORT INFORMATION
  Report Type: 
  Country: None (occurrence: None)
  Receive Date: 20110614
  Receipt Date: 20110607
  Transmission Date: 20111010
  Serious: Yes (Other)
  Sender: FDA-Public Use
  Company Number: US-MERCK-1106USA00939

PATIENT
  Sex: Female

DRUGS (1)
  1. MAXALT-MLT [Suspect]
     Indication: MIGRAINE
     Route: 060
     Dates: start: 20100101, end: 20100101

REACTIONS (2)
  - TONGUE DRY [None]
  - TONGUE DISORDER [None]
